FAERS Safety Report 16116948 (Version 1)
Quarter: 2019Q2

REPORT INFORMATION
  Report Type: Spontaneous
  Country: US (occurrence: US)
  Receive Date: 20190325
  Receipt Date: 20190325
  Transmission Date: 20190711
  Serious: No
  Sender: FDA-Public Use
  Company Number: None

PATIENT
  Age: 38 Year
  Sex: Female
  Weight: 59.4 kg

DRUGS (1)
  1. LEVOTHYROXINE. [Suspect]
     Active Substance: LEVOTHYROXINE
     Indication: HYPOTHYROIDISM
     Route: 048
     Dates: start: 20181223, end: 20190322

REACTIONS (4)
  - Blood thyroid stimulating hormone increased [None]
  - Asthenia [None]
  - Product formulation issue [None]
  - Fatigue [None]

NARRATIVE: CASE EVENT DATE: 20190201
